FAERS Safety Report 8607798 (Version 2)
Quarter: 2013Q4

REPORT INFORMATION
  Report Type: Spontaneous
  Country: US (occurrence: US)
  Receive Date: 20120611
  Receipt Date: 20131011
  Transmission Date: 20140711
  Serious: Yes (Hospitalization, Other)
  Sender: FDA-Public Use
  Company Number: US-ASTRAZENECA-2012SE35457

PATIENT
  Sex: Female
  Weight: 90.7 kg

DRUGS (13)
  1. NEXIUM [Suspect]
     Indication: GASTROOESOPHAGEAL REFLUX DISEASE
     Route: 048
     Dates: start: 2000, end: 20130506
  2. PRILOSEC [Suspect]
     Indication: GASTROOESOPHAGEAL REFLUX DISEASE
     Route: 048
     Dates: start: 2000, end: 2005
  3. ZANTAC [Concomitant]
     Dates: start: 1998
  4. VITAMIN E [Concomitant]
     Dosage: DAILY
  5. CALCIUM [Concomitant]
  6. MAGNESIUM [Concomitant]
     Dosage: TWO TIMES DAILY
  7. FISH OIL [Concomitant]
  8. POTASSIUM CHLORIDE [Concomitant]
  9. FUROSEMIDE [Concomitant]
  10. PREDNISONE [Concomitant]
  11. SIMVASTATIN [Concomitant]
  12. IBUPROFEN [Concomitant]
  13. ASPIRIN [Concomitant]

REACTIONS (8)
  - Femur fracture [Unknown]
  - Upper limb fracture [Unknown]
  - Osteoporosis [Unknown]
  - Bone density decreased [Unknown]
  - Arthritis [Unknown]
  - Cataract [Unknown]
  - Glaucoma [Unknown]
  - Vitamin D deficiency [Unknown]
